FAERS Safety Report 25134238 (Version 3)
Quarter: 2025Q2

REPORT INFORMATION
  Report Type: Spontaneous
  Country: US (occurrence: US)
  Receive Date: 20250328
  Receipt Date: 20250506
  Transmission Date: 20250717
  Serious: Yes (Other)
  Sender: RANBAXY
  Company Number: US-SUN PHARMACEUTICAL INDUSTRIES LTD-2025R1-500597

PATIENT
  Sex: Male

DRUGS (2)
  1. ODOMZO [Suspect]
     Active Substance: SONIDEGIB
     Indication: Basal cell carcinoma
     Route: 048
     Dates: start: 20241001
  2. ODOMZO [Suspect]
     Active Substance: SONIDEGIB
     Route: 048
     Dates: start: 20241223, end: 202502

REACTIONS (2)
  - Disease recurrence [Unknown]
  - Muscle spasms [Unknown]
